FAERS Safety Report 10302260 (Version 1)
Quarter: 2014Q3

REPORT INFORMATION
  Report Type: Spontaneous
  Country: US (occurrence: None)
  Receive Date: 20140710
  Receipt Date: 20140710
  Transmission Date: 20150326
  Serious: Yes (Disabling)
  Sender: FDA-Public Use
  Company Number: None

PATIENT
  Age: 53 Year
  Sex: Female
  Weight: 90.72 kg

DRUGS (9)
  1. DULOXETINE [Suspect]
     Active Substance: DULOXETINE
     Indication: DEPRESSION
     Dosage: 30MG CAP, 1-2 PILLS, ONCE DAILY, BY MOUTH
     Route: 048
     Dates: start: 201403, end: 20140422
  2. OMEGA-3 + D3 [Concomitant]
  3. PSYLLIUM [Concomitant]
     Active Substance: PLANTAGO SEED
  4. ZOLPIDEM TARTRATE. [Concomitant]
     Active Substance: ZOLPIDEM TARTRATE
  5. FLUTICASONE PROP [Concomitant]
  6. WOMENS ONE-MULTI VIT [Concomitant]
  7. VITAMIN B COMPLEX [Concomitant]
     Active Substance: CYANOCOBALAMIN\DEXPANTHENOL\NIACINAMIDE\PYRIDOXINE HYDROCHLORIDE\RIBOFLAVIN 5^-PHOSPHATE SODIUM\THIAMINE HYDROCHLORIDE\VITAMIN B COMPLEX
  8. MAGNESIUM ASPOROTATE [Concomitant]
  9. STOOL SOFTNER [Concomitant]

REACTIONS (2)
  - Pruritus [None]
  - Dandruff [None]

NARRATIVE: CASE EVENT DATE: 201403
